FAERS Safety Report 23721070 (Version 1)
Quarter: 2024Q2

REPORT INFORMATION
  Report Type: Spontaneous
  Country: US (occurrence: US)
  Receive Date: 20240409
  Receipt Date: 20240409
  Transmission Date: 20240716
  Serious: No
  Sender: FDA-Public Use
  Company Number: US-TEVA-VS-3174691

PATIENT
  Age: 67 Year
  Sex: Female

DRUGS (7)
  1. UZEDY [Suspect]
     Active Substance: RISPERIDONE
     Indication: Bipolar disorder
     Dosage: EXTENDED-RELEASE INJECTABLE SUSPENSION
     Route: 065
     Dates: start: 20231129
  2. DEPAKOTE [Concomitant]
     Active Substance: DIVALPROEX SODIUM
     Indication: Bipolar disorder
  3. LAMICTAL [Concomitant]
     Active Substance: LAMOTRIGINE
     Indication: Bipolar disorder
  4. ZYPREXA [Concomitant]
     Active Substance: OLANZAPINE
     Indication: Bipolar disorder
  5. PROLIXIN [Concomitant]
     Active Substance: FLUPHENAZINE HYDROCHLORIDE
     Indication: Bipolar disorder
  6. GEODON [Suspect]
     Active Substance: ZIPRASIDONE HYDROCHLORIDE\ZIPRASIDONE MESYLATE
     Indication: Bipolar disorder
     Route: 065
  7. RISPERIDONE [Suspect]
     Active Substance: RISPERIDONE
     Indication: Bipolar disorder
     Route: 048

REACTIONS (3)
  - Off label use [Unknown]
  - Treatment failure [Unknown]
  - Tremor [Unknown]

NARRATIVE: CASE EVENT DATE: 20231129
